FAERS Safety Report 24763661 (Version 1)
Quarter: 2024Q4

REPORT INFORMATION
  Report Type: Spontaneous
  Country: US (occurrence: US)
  Receive Date: 20241223
  Receipt Date: 20241223
  Transmission Date: 20250114
  Serious: No
  Sender: INDOCO REMEDIES LIMITED
  Company Number: US-INDOCO-IND-2024-US-SPO-00370

PATIENT
  Sex: Male

DRUGS (1)
  1. DORZOLAMIDE HYDROCHLORIDE\TIMOLOL MALEATE [Suspect]
     Active Substance: DORZOLAMIDE HYDROCHLORIDE\TIMOLOL MALEATE
     Indication: Product used for unknown indication
     Dosage: CONSUMER HAS HALF OF THE BOTTLE LEFT
     Route: 047
     Dates: start: 202410

REACTIONS (1)
  - Vision blurred [Recovered/Resolved]
